FAERS Safety Report 21403086 (Version 1)
Quarter: 2022Q4

REPORT INFORMATION
  Report Type: Spontaneous
  Country: DE (occurrence: DE)
  Receive Date: 20221003
  Receipt Date: 20221003
  Transmission Date: 20230112
  Serious: Yes (Hospitalization)
  Sender: FDA-Public Use
  Company Number: DE-NOVARTISPH-NVSC2022DE217080

PATIENT
  Age: 56 Year
  Sex: Female

DRUGS (10)
  1. ASPIRIN [Suspect]
     Active Substance: ASPIRIN
     Indication: Product used for unknown indication
     Dosage: 100 MG, QD (1-0-0-0)
     Route: 065
  2. CERTOPARIN SODIUM [Suspect]
     Active Substance: CERTOPARIN SODIUM
     Indication: Product used for unknown indication
     Dosage: 3000 IE/ TAG, QD (0-0-1-0)
     Route: 065
  3. SACCHAROMYCES CEREVISIAE [Suspect]
     Active Substance: SACCHAROMYCES CEREVISIAE
     Indication: Product used for unknown indication
     Dosage: 250 MG, QD (1-0-0-0 )
     Route: 065
  4. ESCITALOPRAM [Concomitant]
     Active Substance: ESCITALOPRAM OXALATE
     Indication: Product used for unknown indication
     Dosage: 20 MG, BID (1-0-1-0)
     Route: 065
  5. ESOMEPRAZOLE [Concomitant]
     Active Substance: ESOMEPRAZOLE
     Indication: Product used for unknown indication
     Dosage: 20 MG, QD (1-0-0-0)
     Route: 065
  6. PIRENZEPINE [Concomitant]
     Active Substance: PIRENZEPINE
     Indication: Product used for unknown indication
     Dosage: 50 MG, BID (1-0-1-0)
     Route: 065
  7. METAMIZOLE [Concomitant]
     Active Substance: METAMIZOLE
     Indication: Product used for unknown indication
     Dosage: UNK (1 TROPFEN, 20-0-20-0)
     Route: 065
  8. TORSEMIDE [Concomitant]
     Active Substance: TORSEMIDE
     Indication: Product used for unknown indication
     Dosage: 10 MG, QD (1-0-0-0)
     Route: 065
  9. LEVOTHYROXINE SODIUM [Concomitant]
     Active Substance: LEVOTHYROXINE SODIUM
     Indication: Product used for unknown indication
     Dosage: 150 UG, QD (1-0-0-0)
     Route: 065
  10. CLONAZEPAM [Concomitant]
     Active Substance: CLONAZEPAM
     Indication: Product used for unknown indication
     Dosage: 0.5 MG, QD (0-0-1-0)
     Route: 065

REACTIONS (10)
  - Haematuria [Unknown]
  - Systemic infection [Unknown]
  - Acute respiratory failure [Unknown]
  - Condition aggravated [Unknown]
  - Electrolyte imbalance [Unknown]
  - General physical health deterioration [Unknown]
  - Urogenital haemorrhage [Unknown]
  - Renal impairment [Unknown]
  - Anaemia [Unknown]
  - Hypotension [Unknown]
